FAERS Safety Report 4912627-9 (Version None)
Quarter: 2006Q1

REPORT INFORMATION
  Report Type: 
  Country: None (occurrence: None)
  Receive Date: 20060215
  Receipt Date: 20051219
  Transmission Date: 20060701
  Serious: Yes (Hospitalization)
  Sender: FDA-Public Use
  Company Number: US-MERCK-0512USA02802

PATIENT
  Age: 57 Year
  Sex: Female

DRUGS (7)
  1. VIOXX [Suspect]
     Route: 048
  2. LISINOPRIL [Concomitant]
     Indication: HYPERTENSION
     Route: 048
  3. HYDROCHLOROTHIAZIDE [Concomitant]
     Indication: HYPERTENSION
     Route: 048
  4. LORATADINE [Concomitant]
     Indication: GASTROOESOPHAGEAL REFLUX DISEASE
     Route: 048
  5. POTASSIUM CHLORIDE [Concomitant]
     Route: 048
  6. TYLENOL W/ CODEINE NO. 3 [Concomitant]
     Route: 048
  7. CELEBREX [Concomitant]
     Route: 048

REACTIONS (12)
  - CARDIAC DISORDER [None]
  - COUGH [None]
  - FALL [None]
  - HAEMORRHAGE [None]
  - HEAD INJURY [None]
  - HEADACHE [None]
  - HYPERTENSION [None]
  - LOSS OF CONSCIOUSNESS [None]
  - MENINGIOMA [None]
  - POST-TRAUMATIC HEADACHE [None]
  - VISION BLURRED [None]
  - VISUAL DISTURBANCE [None]
